FAERS Safety Report 7351032-5 (Version None)
Quarter: 2011Q1

REPORT INFORMATION
  Report Type: 
  Country: None (occurrence: None)
  Receive Date: 20110314
  Receipt Date: 20110303
  Transmission Date: 20110831
  Serious: Yes (Hospitalization)
  Sender: FDA-Public Use
  Company Number: US-ASTRAZENECA-2011SE11881

PATIENT
  Age: 46 Year
  Sex: Male

DRUGS (16)
  1. ANTIBIOTICS [Concomitant]
  2. LOSARTAN [Concomitant]
  3. LYRICA [Concomitant]
  4. CALCIUM [Concomitant]
  5. NEXIUM [Suspect]
     Indication: GASTROOESOPHAGEAL REFLUX DISEASE
     Route: 048
     Dates: start: 20010101, end: 20040101
  6. LOVAZA [Concomitant]
  7. VICODIN [Concomitant]
     Dosage: PRN
  8. NEXIUM [Suspect]
     Route: 048
     Dates: start: 20040101
  9. SIMVASTATIN [Concomitant]
  10. JANTOVEN [Concomitant]
  11. BUPROPION HCL [Concomitant]
  12. MULTIVITAMIAN [Concomitant]
  13. OXYCODONE HCL [Concomitant]
     Dosage: PRN
  14. CYMBALTA [Concomitant]
  15. DIAZEPAM [Concomitant]
  16. ASCORBIC ACID [Concomitant]

REACTIONS (8)
  - SURGERY [None]
  - SCAR [None]
  - INTESTINAL ANASTOMOSIS [None]
  - FLATULENCE [None]
  - DIARRHOEA [None]
  - GASTRIC BYPASS [None]
  - COUGH [None]
  - ABDOMINAL PAIN [None]
